FAERS Safety Report 23542540 (Version 1)
Quarter: 2024Q1

REPORT INFORMATION
  Report Type: Spontaneous
  Country: US (occurrence: US)
  Receive Date: 20240220
  Receipt Date: 20240220
  Transmission Date: 20240410
  Serious: Yes (Hospitalization, Other)
  Sender: FDA-Public Use
  Company Number: US-ALEMBIC PHARMACUETICALS LIMITED-2024SCAL000093

PATIENT

DRUGS (1)
  1. TERIFLUNOMIDE [Suspect]
     Active Substance: TERIFLUNOMIDE
     Indication: Relapsing multiple sclerosis
     Dosage: 14 MILLIGRAM, QD
     Route: 065

REACTIONS (15)
  - Hepatotoxicity [Unknown]
  - Drug-induced liver injury [Unknown]
  - Mental status changes [Unknown]
  - Fatigue [Unknown]
  - Decreased appetite [Unknown]
  - Jaundice [Unknown]
  - Tachycardia [Unknown]
  - Smooth muscle antibody positive [Unknown]
  - Serum ferritin increased [Unknown]
  - Aspartate aminotransferase increased [Recovered/Resolved]
  - Alanine aminotransferase increased [Recovered/Resolved]
  - Blood alkaline phosphatase increased [Recovering/Resolving]
  - Blood bilirubin increased [Recovered/Resolved]
  - International normalised ratio increased [Not Recovered/Not Resolved]
  - Steatohepatitis [Unknown]
